FAERS Safety Report 6083521-8 (Version None)
Quarter: 2009Q1

REPORT INFORMATION
  Report Type: 
  Country: None (occurrence: None)
  Receive Date: 20090219
  Receipt Date: 20090209
  Transmission Date: 20090719
  Serious: Yes (Hospitalization)
  Sender: FDA-Public Use
  Company Number: JP-ROCHE-614633

PATIENT
  Age: 50 Year
  Sex: Female

DRUGS (2)
  1. PEGASYS [Suspect]
     Indication: HEPATITIS C
     Route: 058
     Dates: start: 20080606
  2. COPEGUS [Suspect]
     Indication: HEPATITIS C
     Route: 048
     Dates: start: 20080606

REACTIONS (1)
  - NEPHROTIC SYNDROME [None]
